FAERS Safety Report 6990076 (Version 26)
Quarter: 2014Q2

REPORT INFORMATION
  Report Type: Spontaneous
  Country: US (occurrence: US)
  Receive Date: 20090508
  Receipt Date: 20140408
  Transmission Date: 20141212
  Serious: Yes (Death, Hospitalization, Other)
  Sender: FDA-Public Use
  Company Number: PHEH2009US04395

PATIENT
  Sex: Male
  Weight: 98.41 kg

DRUGS (36)
  1. ZOMETA [Suspect]
     Indication: NEOPLASM MALIGNANT
     Dosage: 4 MG, QMO
     Route: 042
     Dates: start: 20020814
  2. ZOMETA [Suspect]
     Indication: BONE LOSS
     Route: 042
     Dates: start: 200301, end: 200708
  3. AREDIA [Suspect]
     Dosage: 90 MG
     Route: 042
  4. COUMADIN [Concomitant]
  5. LYRICA [Concomitant]
  6. NEXIUM [Concomitant]
  7. REVLIMID [Concomitant]
  8. PREDNISONE [Concomitant]
  9. COMBIVENT [Concomitant]
  10. FLOVENT [Concomitant]
  11. AMBIEN [Concomitant]
     Dosage: 10 MG, QHS
     Route: 048
  12. OXYCONTIN [Concomitant]
     Dosage: 20 MG, QHS
     Route: 048
  13. ASPIRIN [Concomitant]
  14. SOLU-MEDROL [Concomitant]
     Dosage: 60 MG, Q6H
     Route: 042
  15. PROTONIX [Concomitant]
     Dosage: 40 MG, QD
     Route: 048
  16. ZYVOX [Concomitant]
     Dosage: 600 MG, Q12H
     Route: 042
  17. RESTORIL [Concomitant]
     Dosage: 15 MG, QHS, PRN
     Route: 048
  18. ZOFRAN [Concomitant]
  19. CYMBALTA [Concomitant]
     Dosage: 1 DF, QD
  20. SUCRALFATE [Concomitant]
     Dosage: 1 DF, TID
  21. PHENERGAN [Concomitant]
     Dosage: 1 DF, QHS
  22. SYMBICORT [Concomitant]
     Dosage: 160 UG AND 4.5 UG, 2 PUFF, BID
     Route: 055
  23. ADVAIR DISKUS [Concomitant]
     Dosage: 500 UG AND 50 UG, 1 PUFF, BID
  24. EXCEDRIN [Concomitant]
     Dosage: 2 DF, BID
  25. PENICILLIN V-K [Concomitant]
     Dosage: 500 MG, QD
  26. ROCEPHIN [Concomitant]
     Dosage: 1 G, QD
  27. LACTULOSE [Concomitant]
     Dosage: 30 ML, TID
  28. LOMOTIL [Concomitant]
     Dosage: 2.5 MG, QID
  29. COREG [Concomitant]
     Dosage: 1 DF, BID
     Route: 048
  30. TOPRAL [Concomitant]
  31. PAXIL [Concomitant]
  32. HUMIBID [Concomitant]
  33. CELEBREX [Concomitant]
  34. SKELAXIN [Concomitant]
  35. KLONOPIN [Concomitant]
  36. ASTELIN [Concomitant]
     Route: 045

REACTIONS (132)
  - Plasma cell myeloma [Fatal]
  - Osteonecrosis of jaw [Unknown]
  - Injury [Unknown]
  - Swelling face [Unknown]
  - Dry mouth [Unknown]
  - Mouth haemorrhage [Unknown]
  - Dental caries [Unknown]
  - Granuloma [Unknown]
  - Anxiety [Unknown]
  - Jaw fracture [Unknown]
  - Pain [Unknown]
  - Exposed bone in jaw [Unknown]
  - Disability [Unknown]
  - Pain in jaw [Unknown]
  - Osteomyelitis [Unknown]
  - Oral cavity fistula [Unknown]
  - Pulmonary mass [Unknown]
  - Acute sinusitis [Unknown]
  - Chronic sinusitis [Unknown]
  - Pneumonia [Unknown]
  - Infection [Unknown]
  - Cough [Unknown]
  - Lung infiltration [Unknown]
  - Dyspnoea [Unknown]
  - Atelectasis [Unknown]
  - Spondylolisthesis [Unknown]
  - Dermal cyst [Unknown]
  - Cerebral atrophy [Unknown]
  - Coronary artery disease [Unknown]
  - Bronchiolitis [Unknown]
  - Obstructive airways disorder [Unknown]
  - Cardiomegaly [Unknown]
  - Pulmonary oedema [Unknown]
  - Pleural effusion [Unknown]
  - Renal failure acute [Unknown]
  - Metabolic acidosis [Unknown]
  - Hepatic steatosis [Unknown]
  - Cholelithiasis [Unknown]
  - Cardiac failure congestive [Unknown]
  - Chronic obstructive pulmonary disease [Unknown]
  - Umbilical hernia [Unknown]
  - Hypertension [Unknown]
  - Seborrhoeic dermatitis [Unknown]
  - Iron deficiency anaemia [Unknown]
  - Barrett^s oesophagus [Unknown]
  - Skin lesion [Unknown]
  - Thrombocytopenia [Unknown]
  - Balanoposthitis [Unknown]
  - Herpes virus infection [Unknown]
  - Acute prerenal failure [Unknown]
  - Hypoxia [Unknown]
  - Tremor [Unknown]
  - Fall [Unknown]
  - Exophthalmos [Unknown]
  - Parkinson^s disease [Unknown]
  - Syncope [Unknown]
  - Hypothyroidism [Unknown]
  - Epistaxis [Unknown]
  - Benign prostatic hyperplasia [Unknown]
  - Hiatus hernia [Unknown]
  - Melaena [Unknown]
  - Metastases to bone [Unknown]
  - Hypokalaemia [Unknown]
  - Sepsis [Unknown]
  - Tricuspid valve incompetence [Unknown]
  - Mitral valve incompetence [Unknown]
  - Bronchiectasis [Unknown]
  - Sleep apnoea syndrome [Unknown]
  - Atrial fibrillation [Unknown]
  - Carotid artery stenosis [Unknown]
  - Rib fracture [Unknown]
  - Interstitial lung disease [Unknown]
  - Hepatitis acute [Unknown]
  - Pseudomonas bronchitis [Unknown]
  - Tibia fracture [Unknown]
  - Rhabdomyolysis [Unknown]
  - Cerebrovascular accident [Unknown]
  - Dilatation ventricular [Unknown]
  - Respiratory distress [Unknown]
  - Chest pain [Unknown]
  - Melanocytic naevus [Unknown]
  - Seborrhoeic keratosis [Unknown]
  - Pseudocyst [Unknown]
  - Acanthosis [Unknown]
  - Swelling [Unknown]
  - Abscess [Unknown]
  - Pathological fracture [Unknown]
  - Oesophageal ulcer [Unknown]
  - Nocturia [Unknown]
  - Diabetes mellitus [Unknown]
  - Arteriosclerosis [Unknown]
  - Loss of consciousness [Unknown]
  - Convulsion [Unknown]
  - Emphysema [Unknown]
  - Mental status changes [Unknown]
  - Cellulitis [Recovered/Resolved]
  - Ileus [Unknown]
  - Haematemesis [Unknown]
  - Respiratory failure [Recovered/Resolved]
  - Femur fracture [Unknown]
  - Purulent discharge [Unknown]
  - Hypogammaglobulinaemia [Unknown]
  - Hypoproteinaemia [Unknown]
  - Gait disturbance [Unknown]
  - Tachycardia [Unknown]
  - Depression [Unknown]
  - Alveolitis [Unknown]
  - Dehydration [Unknown]
  - Otitis media [Unknown]
  - Pulmonary fibrosis [Unknown]
  - Arteriosclerosis coronary artery [Unknown]
  - Bronchospasm [Unknown]
  - Hypotension [Unknown]
  - Abdominal distension [Unknown]
  - Nausea [Unknown]
  - Dyspnoea exertional [Unknown]
  - Rales [Unknown]
  - Dysaesthesia [Unknown]
  - Flushing [Unknown]
  - Abdominal pain [Unknown]
  - Pulmonary toxicity [Unknown]
  - Pharyngeal ulceration [Unknown]
  - Hypoaesthesia [Unknown]
  - Diarrhoea [Recovering/Resolving]
  - Bronchial hyperreactivity [Unknown]
  - Asthma [Unknown]
  - Productive cough [Unknown]
  - Bronchitis [Unknown]
  - Soft tissue disorder [Unknown]
  - Oedema peripheral [Unknown]
  - Face oedema [Unknown]
  - Induration [Unknown]
